FAERS Safety Report 22338095 (Version 1)
Quarter: 2023Q2

REPORT INFORMATION
  Report Type: Spontaneous
  Country: US (occurrence: US)
  Receive Date: 20230518
  Receipt Date: 20230518
  Transmission Date: 20230722
  Serious: No
  Sender: FDA-Public Use
  Company Number: US-SANOFI-01612822

PATIENT
  Sex: Female

DRUGS (4)
  1. SOLIQUA 100/33 [Suspect]
     Active Substance: INSULIN GLARGINE\LIXISENATIDE
     Indication: Type 2 diabetes mellitus
     Dosage: UNK
  2. BASAGLAR [Concomitant]
     Active Substance: INSULIN GLARGINE
     Dosage: BASAGLAR TWICE A DAY AT 36 UNITS AT NIGHT AND 20 UNITS IN THE MORNING BUT IS NOW ON 21 UNITS AT NIGH
  3. BASAGLAR [Concomitant]
     Active Substance: INSULIN GLARGINE
     Dosage: BASAGLAR TWICE A DAY AT 36 UNITS AT NIGHT AND 20 UNITS IN THE MORNING BUT IS NOW ON 21 UNITS AT NIGH
  4. GLIPIZIDE [Concomitant]
     Active Substance: GLIPIZIDE

REACTIONS (3)
  - Blood glucose fluctuation [Unknown]
  - Glycosylated haemoglobin increased [Unknown]
  - Product prescribing issue [Unknown]
